FAERS Safety Report 10035471 (Version 1)
Quarter: 2014Q1

REPORT INFORMATION
  Report Type: Spontaneous
  Country: US (occurrence: US)
  Receive Date: 20140325
  Receipt Date: 20140325
  Transmission Date: 20141002
  Serious: No
  Sender: FDA-Public Use
  Company Number: US-PFIZER INC-2014081346

PATIENT
  Age: 53 Year
  Sex: Female
  Weight: 61 kg

DRUGS (1)
  1. FELDENE [Suspect]
     Indication: PAIN
     Dosage: 20 MG, 1X/DAY

REACTIONS (1)
  - Drug effect decreased [Unknown]
